FAERS Safety Report 8207776-6 (Version None)
Quarter: 2012Q1

REPORT INFORMATION
  Report Type: 
  Country: None (occurrence: None)
  Receive Date: 20120227
  Receipt Date: 20111107
  Transmission Date: 20120608
  Serious: No
  Sender: FDA-Public Use
  Company Number: 338889

PATIENT
  Age: 43 Year
  Sex: Female

DRUGS (1)
  1. VICTOZA [Suspect]
     Indication: TYPE 2 DIABETES MELLITUS
     Dosage: 0.6 MG, QD, SUBCUTANEOUS, 1.2 MG, QD, SUBCUTANEOUS, 0.6 MG, QD, SUBCUTANEOUS
     Route: 058

REACTIONS (7)
  - HAEMATOCHEZIA [None]
  - LOCAL SWELLING [None]
  - CHEST DISCOMFORT [None]
  - DIARRHOEA [None]
  - CHEST PAIN [None]
  - ABDOMINAL PAIN [None]
  - DYSPNOEA [None]
